FAERS Safety Report 21852947 (Version 1)
Quarter: 2023Q1

REPORT INFORMATION
  Report Type: Report from Study
  Country: US (occurrence: US)
  Receive Date: 20230112
  Receipt Date: 20230112
  Transmission Date: 20230417
  Serious: No
  Sender: FDA-Public Use
  Company Number: US-ABBVIE-4236360

PATIENT
  Sex: Male

DRUGS (1)
  1. HUMIRA [Suspect]
     Active Substance: ADALIMUMAB
     Indication: Ankylosing spondylitis
     Route: 058
     Dates: start: 20211125

REACTIONS (4)
  - Injection site pruritus [Recovering/Resolving]
  - Blood test abnormal [Recovered/Resolved]
  - Injection site swelling [Unknown]
  - Fatigue [Recovering/Resolving]
